FAERS Safety Report 15719131 (Version 2)
Quarter: 2019Q3

REPORT INFORMATION
  Report Type: Report from Study
  Country: US (occurrence: US)
  Receive Date: 20181213
  Receipt Date: 20190716
  Transmission Date: 20191004
  Serious: Yes (Other)
  Sender: FDA-Public Use
  Company Number: US-JNJFOC-20180638682

PATIENT
  Age: 66 Year
  Sex: Male

DRUGS (6)
  1. IMBRUVICA [Suspect]
     Active Substance: IBRUTINIB
     Route: 048
     Dates: start: 20170328, end: 20180430
  2. IMBRUVICA [Suspect]
     Active Substance: IBRUTINIB
     Route: 048
  3. IMBRUVICA [Suspect]
     Active Substance: IBRUTINIB
     Indication: NON-HODGKIN^S LYMPHOMA
     Route: 048
     Dates: start: 20170323, end: 201804
  4. IMBRUVICA [Suspect]
     Active Substance: IBRUTINIB
     Route: 048
     Dates: start: 20180501, end: 201812
  5. MULTIVITAMINS [Concomitant]
     Active Substance: VITAMINS
  6. IMBRUVICA [Suspect]
     Active Substance: IBRUTINIB
     Indication: NON-HODGKIN^S LYMPHOMA
     Route: 048
     Dates: start: 20180430

REACTIONS (9)
  - Peripheral swelling [Unknown]
  - Haematoma muscle [Unknown]
  - Chills [Unknown]
  - Cyst [Unknown]
  - Synovial cyst [Unknown]
  - Muscle rupture [Unknown]
  - Headache [Unknown]
  - Migraine [Unknown]
  - Night sweats [Unknown]

NARRATIVE: CASE EVENT DATE: 2018
